FAERS Safety Report 9194865 (Version 1)
Quarter: 2013Q1

REPORT INFORMATION
  Report Type: Spontaneous
  Country: US (occurrence: US)
  Receive Date: 20130328
  Receipt Date: 20130328
  Transmission Date: 20140127
  Serious: No
  Sender: FDA-Public Use
  Company Number: US-ALLERGAN-1213264US

PATIENT
  Age: 62 Year
  Sex: Female

DRUGS (5)
  1. LATISSE 0.03% [Suspect]
     Indication: GROWTH OF EYELASHES
     Dosage: UNK
     Route: 061
     Dates: start: 2011, end: 201209
  2. LATISSE 0.03% [Suspect]
     Dosage: UNK
     Route: 061
     Dates: start: 2011, end: 201209
  3. BUSPAR [Concomitant]
     Indication: PRODUCT USED FOR UNKNOWN INDICATION
     Dosage: UNK UNK, QD
     Route: 048
  4. PATADAY [Concomitant]
     Indication: EYE PRURITUS
     Dosage: 2 GTT, PRN
     Route: 047
  5. HRT CREAM [Concomitant]
     Indication: HORMONE REPLACEMENT THERAPY
     Dosage: UNK, QD
     Route: 061

REACTIONS (10)
  - Dyspnoea [Recovered/Resolved]
  - Blepharochalasis [Recovered/Resolved]
  - Swelling face [Recovered/Resolved]
  - Incorrect dose administered [Unknown]
  - Inappropriate schedule of drug administration [Unknown]
  - Wrong technique in drug usage process [Unknown]
  - Drug administered at inappropriate site [Unknown]
  - Eye irritation [Recovered/Resolved]
  - Erythema of eyelid [Recovered/Resolved]
  - Ocular hyperaemia [Recovered/Resolved]
